FAERS Safety Report 14313230 (Version 1)
Quarter: 2017Q4

REPORT INFORMATION
  Report Type: Spontaneous
  Country: US (occurrence: US)
  Receive Date: 20171220
  Receipt Date: 20171220
  Transmission Date: 20180321
  Serious: No
  Sender: FDA-Public Use
  Company Number: None

PATIENT
  Age: 66 Year
  Sex: Female

DRUGS (3)
  1. MVI [Concomitant]
     Active Substance: VITAMINS
  2. BOMEO POWDER [Concomitant]
  3. AZITHROMYCIN ANHYDROUS. [Suspect]
     Active Substance: AZITHROMYCIN ANHYDROUS
     Indication: INFECTION
     Dosage: ?          QUANTITY:1 TABLET(S);OTHER FREQUENCY:AS DIRECTED;?
     Route: 048
     Dates: start: 20171219, end: 20171220

REACTIONS (2)
  - Dyspnoea [None]
  - Anxiety [None]

NARRATIVE: CASE EVENT DATE: 20171220
